FAERS Safety Report 14665677 (Version 1)
Quarter: 2018Q1

REPORT INFORMATION
  Report Type: Spontaneous
  Country: CA (occurrence: CA)
  Receive Date: 20180321
  Receipt Date: 20180321
  Transmission Date: 20180509
  Serious: Yes (Disabling)
  Sender: FDA-Public Use
  Company Number: CA-BAYER-2018-051434

PATIENT
  Age: 39 Year
  Sex: Female

DRUGS (2)
  1. MIRENA [Suspect]
     Active Substance: LEVONORGESTREL
  2. MIRENA [Suspect]
     Active Substance: LEVONORGESTREL
     Dosage: 20 MCG/24HR, CONT
     Route: 015

REACTIONS (44)
  - Eye pain [Unknown]
  - Pollakiuria [Unknown]
  - Early satiety [Unknown]
  - Insomnia [Unknown]
  - Lymph node pain [Unknown]
  - Muscular weakness [Unknown]
  - Musculoskeletal pain [Unknown]
  - Night sweats [Unknown]
  - Spinal pain [Unknown]
  - Band sensation [Unknown]
  - Decreased appetite [Unknown]
  - Dizziness [Unknown]
  - Fatigue [Unknown]
  - Impaired work ability [Unknown]
  - Mental impairment [Unknown]
  - Micturition urgency [Unknown]
  - Ear pain [Unknown]
  - Malaise [Unknown]
  - Menstruation delayed [Unknown]
  - Dyspnoea [Unknown]
  - Memory impairment [Unknown]
  - Thirst [Unknown]
  - Abdominal pain [Unknown]
  - Chest pain [Unknown]
  - Disturbance in attention [Unknown]
  - Hot flush [Unknown]
  - Pyrexia [Unknown]
  - Alopecia [Unknown]
  - Arthralgia [Unknown]
  - Back pain [Unknown]
  - Bedridden [Unknown]
  - Headache [Unknown]
  - Hunger [Unknown]
  - Nausea [Unknown]
  - Neck pain [Unknown]
  - Oropharyngeal pain [Unknown]
  - Weight decreased [Unknown]
  - Cognitive disorder [Unknown]
  - Exercise tolerance decreased [Unknown]
  - Musculoskeletal chest pain [Unknown]
  - Palpitations [Unknown]
  - Paraesthesia [Unknown]
  - Poor quality sleep [Unknown]
  - Sensory loss [Unknown]
